FAERS Safety Report 5362422-4 (Version None)
Quarter: 2007Q2

REPORT INFORMATION
  Report Type: 
  Country: None (occurrence: None)
  Receive Date: 20070619
  Receipt Date: 20050324
  Transmission Date: 20071010
  Serious: Yes (Other)
  Sender: FDA-Public Use
  Company Number: US-ASTRAZENECA-2005UW04787

PATIENT
  Age: 16174 Day
  Sex: Female
  Weight: 72.7 kg

DRUGS (4)
  1. SEROQUEL [Suspect]
     Indication: BIPOLAR I DISORDER
     Route: 048
     Dates: start: 20050217, end: 20050317
  2. DEPAKOTE [Concomitant]
     Indication: AFFECTIVE DISORDER
     Route: 048
     Dates: start: 20050217, end: 20050317
  3. MULTI-VITAMIN [Concomitant]
     Indication: VITAMIN SUPPLEMENTATION
     Route: 048
     Dates: start: 20040101
  4. EXCEDRIN [Concomitant]
     Indication: HEADACHE
     Route: 048
     Dates: start: 20020101

REACTIONS (1)
  - AGRANULOCYTOSIS [None]
